FAERS Safety Report 13782229 (Version 1)
Quarter: 2017Q3

REPORT INFORMATION
  Report Type: Report from Study
  Country: US (occurrence: US)
  Receive Date: 20170724
  Receipt Date: 20170724
  Transmission Date: 20171127
  Serious: Yes (Death, Other)
  Sender: FDA-Public Use
  Company Number: US-IPSEN BIOPHARMACEUTICALS, INC.-2016-04829

PATIENT
  Sex: Female
  Weight: 91.05 kg

DRUGS (17)
  1. LORAZEPAM. [Concomitant]
     Active Substance: LORAZEPAM
  2. D 5000 [Concomitant]
     Indication: VITAMIN D DEFICIENCY
  3. TERAZOL 7 [Concomitant]
     Active Substance: TERCONAZOLE
     Route: 067
  4. PROVENTIL [Concomitant]
     Active Substance: ALBUTEROL
  5. CORTAID MAXIMUM [Concomitant]
  6. LISINOPRIL. [Concomitant]
     Active Substance: LISINOPRIL
     Route: 048
  7. ATENOLOL. [Concomitant]
     Active Substance: ATENOLOL
     Dosage: HALF A TABLET
  8. PRILOSEC [Concomitant]
     Active Substance: OMEPRAZOLE MAGNESIUM
  9. PROVENTIL HFA [Concomitant]
     Active Substance: ALBUTEROL SULFATE
     Dosage: TWO PUFFS
  10. DILAUDID [Concomitant]
     Active Substance: HYDROMORPHONE HYDROCHLORIDE
  11. SOMATULINE DEPOT [Suspect]
     Active Substance: LANREOTIDE ACETATE
     Indication: NEUROENDOCRINE TUMOUR
     Dosage: 120 MG
     Route: 058
     Dates: start: 201509
  12. ASPIRIN. [Concomitant]
     Active Substance: ASPIRIN
     Route: 048
  13. LOMOTIL [Concomitant]
     Active Substance: ATROPINE SULFATE\DIPHENOXYLATE HYDROCHLORIDE
     Indication: DIARRHOEA
  14. LASIX [Concomitant]
     Active Substance: FUROSEMIDE
     Route: 048
  15. POTASSIUM CHLORIDE. [Concomitant]
     Active Substance: POTASSIUM CHLORIDE
  16. NITROSTAT [Concomitant]
     Active Substance: NITROGLYCERIN
     Route: 060
  17. IMDUR [Concomitant]
     Active Substance: ISOSORBIDE MONONITRATE
     Dosage: HALF A TABLET

REACTIONS (11)
  - Oedema peripheral [Unknown]
  - Vitamin D deficiency [Unknown]
  - Vomiting [Unknown]
  - Asthma [Unknown]
  - Depression [Unknown]
  - Diarrhoea [Unknown]
  - Pleural effusion [Unknown]
  - Disease progression [Fatal]
  - Quality of life decreased [Unknown]
  - Migraine [Unknown]
  - Nausea [Unknown]

NARRATIVE: CASE EVENT DATE: 2015
